FAERS Safety Report 13511190 (Version 1)
Quarter: 2017Q2

REPORT INFORMATION
  Report Type: Spontaneous
  Country: US (occurrence: US)
  Receive Date: 20170503
  Receipt Date: 20170503
  Transmission Date: 20170830
  Serious: No
  Sender: FDA-Public Use
  Company Number: US-BAYER-2017-080580

PATIENT
  Age: 56 Year
  Sex: Female

DRUGS (1)
  1. CIPRO [Suspect]
     Active Substance: CIPROFLOXACIN HYDROCHLORIDE
     Indication: BRONCHITIS
     Dosage: 500 MG, UNK
     Route: 048
     Dates: start: 201107

REACTIONS (2)
  - Neuropathy peripheral [Not Recovered/Not Resolved]
  - Neuropathy peripheral [None]
